FAERS Safety Report 17415776 (Version 1)
Quarter: 2020Q1

REPORT INFORMATION
  Report Type: Spontaneous
  Country: DK (occurrence: DK)
  Receive Date: 20200213
  Receipt Date: 20200213
  Transmission Date: 20200409
  Serious: Yes (Other)
  Sender: FDA-Public Use
  Company Number: NVSC2020DK035209

PATIENT
  Age: 71 Year
  Sex: Female

DRUGS (4)
  1. REVLIMID [Concomitant]
     Active Substance: LENALIDOMIDE
     Indication: PLASMA CELL MYELOMA
     Dosage: 25 MG, QD
     Route: 048
     Dates: start: 20190109, end: 20190515
  2. DARATUMUMAB [Concomitant]
     Active Substance: DARATUMUMAB
     Indication: PLASMA CELL MYELOMA
     Dosage: UNK, STYRKE: 20 MG/ML.DOSIS: UKENDT
     Route: 042
  3. ZOMETA [Suspect]
     Active Substance: ZOLEDRONIC ACID
     Indication: PLASMA CELL MYELOMA
     Dosage: 4 MG, Q4W (4 MG/100 ML)
     Route: 042
     Dates: end: 20190425
  4. DEXAMETHASONE. [Concomitant]
     Active Substance: DEXAMETHASONE
     Indication: PLASMA CELL MYELOMA
     Dosage: 20 MG, PRN (STYRKE: 4 MG OG 4 MG/ML.DOSIS: 20 MG EFTER BEHOV, MAX. 1X DGL)
     Route: 065
     Dates: start: 20190104

REACTIONS (4)
  - Abscess oral [Recovered/Resolved]
  - Pain [Unknown]
  - Swelling [Unknown]
  - Osteonecrosis of jaw [Unknown]

NARRATIVE: CASE EVENT DATE: 201905
